FAERS Safety Report 19230735 (Version 1)
Quarter: 2021Q2

REPORT INFORMATION
  Report Type: Spontaneous
  Country: US (occurrence: US)
  Receive Date: 20210507
  Receipt Date: 20210507
  Transmission Date: 20210717
  Serious: Yes (Disabling)
  Sender: FDA-Public Use
  Company Number: None

PATIENT
  Age: 65 Year
  Sex: Male
  Weight: 83.25 kg

DRUGS (13)
  1. LAMOTRIGINE 100MG [Suspect]
     Active Substance: LAMOTRIGINE
     Indication: BIPOLAR II DISORDER
     Dosage: ?          QUANTITY:30 TABLET(S);?
     Route: 048
     Dates: start: 20210504, end: 20210507
  2. COSENTYX [Concomitant]
     Active Substance: SECUKINUMAB
  3. INSULIN GLARGINE [Concomitant]
     Active Substance: INSULIN GLARGINE
  4. CARVEDILOL. [Concomitant]
     Active Substance: CARVEDILOL
  5. VITAMIN D2 [Concomitant]
     Active Substance: ERGOCALCIFEROL
  6. FISH OIL [Concomitant]
     Active Substance: FISH OIL
  7. METFORMIN [Concomitant]
     Active Substance: METFORMIN HYDROCHLORIDE
  8. LISINOPRIL. [Concomitant]
     Active Substance: LISINOPRIL
  9. VITAMIN K [Concomitant]
     Active Substance: PHYTONADIONE
  10. ASPIRIN. [Concomitant]
     Active Substance: ASPIRIN
  11. UBIQUINOL [Concomitant]
     Active Substance: UBIQUINOL
  12. OZEMPIC [Concomitant]
     Active Substance: SEMAGLUTIDE
  13. ATORVASTATIN [Concomitant]
     Active Substance: ATORVASTATIN

REACTIONS (11)
  - Pruritus [None]
  - Vision blurred [None]
  - Headache [None]
  - Myalgia [None]
  - Musculoskeletal stiffness [None]
  - Arthralgia [None]
  - Neck pain [None]
  - Disturbance in attention [None]
  - Peripheral swelling [None]
  - Pain in extremity [None]
  - Erythema [None]

NARRATIVE: CASE EVENT DATE: 20210505
